FAERS Safety Report 6231586-2 (Version None)
Quarter: 2009Q2

REPORT INFORMATION
  Report Type: 
  Country: None (occurrence: None)
  Receive Date: 20090612
  Receipt Date: 20090612
  Transmission Date: 20091009
  Serious: Yes (Hospitalization)
  Sender: FDA-Public Use
  Company Number: None

PATIENT
  Sex: Female
  Weight: 90.7194 kg

DRUGS (1)
  1. LAMOTRIGINE [Suspect]
     Indication: MOOD ALTERED
     Dosage: 175 MG DAILY PO
     Route: 048
     Dates: start: 20090416, end: 20090515

REACTIONS (4)
  - CORNEAL SCAR [None]
  - DRY EYE [None]
  - STEVENS-JOHNSON SYNDROME [None]
  - VULVOVAGINAL MYCOTIC INFECTION [None]
